FAERS Safety Report 4402040-5 (Version None)
Quarter: 2004Q3

REPORT INFORMATION
  Report Type: 
  Country: None (occurrence: None)
  Receive Date: 20040719
  Receipt Date: 20040719
  Transmission Date: 20050211
  Serious: Yes (Life-Threatening)
  Sender: FDA-Public Use
  Company Number: None

PATIENT
  Age: 40 Year
  Sex: Female

DRUGS (2)
  1. TEQUIN [Suspect]
  2. PYRIDIUM [Concomitant]

REACTIONS (5)
  - DIZZINESS [None]
  - ERYTHEMA [None]
  - PRURITUS [None]
  - SWELLING FACE [None]
  - THROAT IRRITATION [None]
